FAERS Safety Report 7938145-1 (Version None)
Quarter: 2011Q4

REPORT INFORMATION
  Report Type: 
  Country: None (occurrence: None)
  Receive Date: 20111123
  Receipt Date: 20111026
  Transmission Date: 20120403
  Serious: No
  Sender: FDA-Public Use
  Company Number: US-BRISTOL-MYERS SQUIBB COMPANY-16202236

PATIENT
  Age: 56 Year
  Sex: Male

DRUGS (1)
  1. ONGLYZA [Suspect]
     Route: 048
     Dates: start: 20110401, end: 20110101

REACTIONS (1)
  - RASH [None]
